FAERS Safety Report 8545878-5 (Version None)
Quarter: 2012Q3

REPORT INFORMATION
  Report Type: 
  Country: None (occurrence: None)
  Receive Date: 20120727
  Receipt Date: 20111115
  Transmission Date: 20120928
  Serious: No
  Sender: FDA-Public Use
  Company Number: US-ASTRAZENECA-2011SE69867

PATIENT
  Age: 35 Year
  Sex: Female

DRUGS (1)
  1. SEROQUEL XR [Suspect]
     Indication: BIPOLAR DISORDER
     Route: 048

REACTIONS (2)
  - DRUG DOSE OMISSION [None]
  - INSOMNIA [None]
